FAERS Safety Report 11891512 (Version 1)
Quarter: 2016Q1

REPORT INFORMATION
  Report Type: Spontaneous
  Country: CA (occurrence: None)
  Receive Date: 20160105
  Receipt Date: 20160105
  Transmission Date: 20160526
  Serious: Yes (Hospitalization)
  Sender: FDA-Public Use
  Company Number: None

PATIENT
  Age: 76 Year
  Sex: Female
  Weight: 81.6 kg

DRUGS (1)
  1. CISPLATIN. [Suspect]
     Active Substance: CISPLATIN
     Dates: end: 20080915

REACTIONS (6)
  - Syncope [None]
  - Transient ischaemic attack [None]
  - Fall [None]
  - Laceration [None]
  - Arteriosclerosis [None]
  - Carotid artery stenosis [None]

NARRATIVE: CASE EVENT DATE: 20151210
